FAERS Safety Report 21795782 (Version 2)
Quarter: 2023Q2

REPORT INFORMATION
  Report Type: Spontaneous
  Country: US (occurrence: US)
  Receive Date: 20221229
  Receipt Date: 20230414
  Transmission Date: 20230722
  Serious: Yes (Hospitalization, Other)
  Sender: FDA-Public Use
  Company Number: US-BRISTOL-MYERS SQUIBB COMPANY-2022-160222

PATIENT
  Age: 10 Year
  Sex: Male

DRUGS (1)
  1. THALOMID [Suspect]
     Active Substance: THALIDOMIDE
     Indication: Product used for unknown indication
     Route: 048
     Dates: start: 20220714, end: 20220825

REACTIONS (5)
  - Febrile neutropenia [Recovered/Resolved]
  - Nephropathy toxic [Unknown]
  - Pulmonary toxicity [Unknown]
  - Myelosuppression [Unknown]
  - Alpha 1 foetoprotein increased [Unknown]

NARRATIVE: CASE EVENT DATE: 20221219
